FAERS Safety Report 8815821 (Version 1)
Quarter: 2012Q4

REPORT INFORMATION
  Report Type: 
  Country: GB (occurrence: GB)
  Receive Date: 20120928
  Receipt Date: 20120928
  Transmission Date: 20130627
  Serious: Yes (Other)
  Sender: FDA-Public Use
  Company Number: GB-B.I. PHARMACEUTICALS,INC./RIDGEFIELD-2012-BP-23682YA

PATIENT
  Age: 55 Year
  Sex: Male
  Weight: 117 kg

DRUGS (7)
  1. TAMSULOSINA [Suspect]
     Indication: BENIGN PROSTATIC HYPERPLASIA
     Dosage: 400 mcg
     Route: 048
     Dates: start: 20120822, end: 20120905
  2. ATORVASTATIN (ATORVASTATIN) [Concomitant]
  3. BISOPROLOL (BISOPROLOL) [Concomitant]
  4. DULOXETINE (DULOXETINE) [Concomitant]
  5. FUROSEMIDE (FUROSEMIDE) [Concomitant]
  6. LIRAGLUTIDE (LIRAGLUTIDE) [Concomitant]
  7. NOVOMIX (INSULIN ASPART, INSULIN ASPART PROTAMINE (CRYSTALLINE)) [Concomitant]

REACTIONS (2)
  - Blood glucose increased [Recovered/Resolved]
  - Diabetes mellitus inadequate control [Recovered/Resolved]
